FAERS Safety Report 20778939 (Version 4)
Quarter: 2022Q2

REPORT INFORMATION
  Report Type: Report from Study
  Country: RW (occurrence: RW)
  Receive Date: 20220503
  Receipt Date: 20220525
  Transmission Date: 20220721
  Serious: Yes (Other)
  Sender: FDA-Public Use
  Company Number: RW-PFIZER INC-202200643886

PATIENT
  Age: 10 Year
  Sex: Male

DRUGS (1)
  1. ELELYSO [Suspect]
     Active Substance: TALIGLUCERASE ALFA
     Indication: Gaucher^s disease
     Dosage: 60U/KG PER DOSE
     Dates: start: 20150804

REACTIONS (1)
  - Loss of consciousness [Recovered/Resolved]
